FAERS Safety Report 8426270-0 (Version None)
Quarter: 2012Q2

REPORT INFORMATION
  Report Type: 
  Country: None (occurrence: None)
  Receive Date: 20120323
  Receipt Date: 20110425
  Transmission Date: 20120825
  Serious: Yes (Other)
  Sender: FDA-Public Use
  Company Number: 163-21880-11043235

PATIENT
  Age: 77 Year
  Sex: Female

DRUGS (4)
  1. REVLIMID [Suspect]
     Indication: MULTIPLE MYELOMA
     Dosage: 25 MG, 1 IN 1 D, PO ; 10 MG, 1 IN 1 D, PO ; 10 MG, 1 IN 1 D, PO ; 15 MG, 1 IN 1 D, PO
     Route: 048
     Dates: start: 20090301
  2. REVLIMID [Suspect]
     Indication: MULTIPLE MYELOMA
     Dosage: 25 MG, 1 IN 1 D, PO ; 10 MG, 1 IN 1 D, PO ; 10 MG, 1 IN 1 D, PO ; 15 MG, 1 IN 1 D, PO
     Route: 048
     Dates: start: 20080901
  3. REVLIMID [Suspect]
     Indication: MULTIPLE MYELOMA
     Dosage: 25 MG, 1 IN 1 D, PO ; 10 MG, 1 IN 1 D, PO ; 10 MG, 1 IN 1 D, PO ; 15 MG, 1 IN 1 D, PO
     Route: 048
     Dates: start: 20100301
  4. REVLIMID [Suspect]
     Indication: MULTIPLE MYELOMA
     Dosage: 25 MG, 1 IN 1 D, PO ; 10 MG, 1 IN 1 D, PO ; 10 MG, 1 IN 1 D, PO ; 15 MG, 1 IN 1 D, PO
     Route: 048
     Dates: start: 20110315

REACTIONS (1)
  - DYSPNOEA [None]
